FAERS Safety Report 5177481-1 (Version None)
Quarter: 2006Q4

REPORT INFORMATION
  Report Type: 
  Country: None (occurrence: None)
  Receive Date: 20061218
  Receipt Date: 20060807
  Transmission Date: 20070319
  Serious: No
  Sender: FDA-Public Use
  Company Number: US-AMGEN-KDL189283

PATIENT
  Sex: Female

DRUGS (2)
  1. ENBREL [Suspect]
     Indication: PSORIATIC ARTHROPATHY
     Route: 058
     Dates: start: 20060806
  2. SULFASALAZINE [Concomitant]
     Dates: start: 20060615

REACTIONS (4)
  - DISORIENTATION [None]
  - HEADACHE [None]
  - HYPOAESTHESIA [None]
  - NIGHTMARE [None]
